FAERS Safety Report 21163764 (Version 1)
Quarter: 2022Q3

REPORT INFORMATION
  Report Type: Spontaneous
  Country: US (occurrence: US)
  Receive Date: 20220803
  Receipt Date: 20220803
  Transmission Date: 20221027
  Serious: No
  Sender: FDA-Public Use
  Company Number: US-BAUSCH-BL-2022-018824

PATIENT

DRUGS (2)
  1. ATIVAN [Suspect]
     Active Substance: LORAZEPAM
     Indication: Product used for unknown indication
     Route: 065
  2. ATIVAN [Suspect]
     Active Substance: LORAZEPAM
     Route: 065

REACTIONS (7)
  - Drug ineffective [Unknown]
  - Product quality issue [Unknown]
  - Product solubility abnormal [Unknown]
  - Product taste abnormal [Unknown]
  - Product physical issue [Unknown]
  - Product packaging issue [Unknown]
  - Poor quality product administered [Unknown]
